FAERS Safety Report 18605384 (Version 1)
Quarter: 2020Q4

REPORT INFORMATION
  Report Type: Spontaneous
  Country: CZ (occurrence: CZ)
  Receive Date: 20201211
  Receipt Date: 20201211
  Transmission Date: 20210114
  Serious: Yes (Hospitalization, Other)
  Sender: FDA-Public Use
  Company Number: CZ-STRIDES ARCOLAB LIMITED-2020SP015342

PATIENT
  Age: 3 Day
  Weight: 3.5 kg

DRUGS (5)
  1. VANCOMYCIN [Suspect]
     Active Substance: VANCOMYCIN
     Dosage: 50 MILLIGRAM, EVERY 6 HRS (14.3 MG/KG)
     Route: 065
  2. VANCOMYCIN [Suspect]
     Active Substance: VANCOMYCIN
     Dosage: UNK, INJECTION
     Route: 041
  3. VANCOMYCIN [Suspect]
     Active Substance: VANCOMYCIN
     Indication: SEPSIS NEONATAL
     Dosage: 50 MILLIGRAM, EVERY 8 HOURS, INJECTION
     Route: 065
  4. NITRIC OXIDE. [Concomitant]
     Active Substance: NITRIC OXIDE
     Indication: CONGENITAL DIAPHRAGMATIC HERNIA
     Dosage: UNK
     Route: 055
  5. SILDENAFIL. [Concomitant]
     Active Substance: SILDENAFIL
     Indication: CONGENITAL DIAPHRAGMATIC HERNIA
     Dosage: UNK
     Route: 065

REACTIONS (4)
  - Drug half-life increased [Recovered/Resolved]
  - Drug level increased [Recovered/Resolved]
  - Drug clearance decreased [Recovered/Resolved]
  - Off label use [Unknown]
